FAERS Safety Report 20108345 (Version 1)
Quarter: 2021Q4

REPORT INFORMATION
  Report Type: Spontaneous
  Country: US (occurrence: None)
  Receive Date: 20211123
  Receipt Date: 20211123
  Transmission Date: 20220303
  Serious: No
  Sender: FDA-Public Use
  Company Number: None

PATIENT
  Age: 29 Year
  Sex: Female
  Weight: 155.7 kg

DRUGS (6)
  1. CIPROFLOXACIN HCL [Suspect]
     Active Substance: CIPROFLOXACIN HYDROCHLORIDE
     Indication: Urinary tract infection
     Dosage: OTHER QUANTITY : 20 TABLET(S);?FREQUENCY : EVERY 12 HOURS;?
     Route: 048
     Dates: start: 20211117
  2. LAMICTAL [Concomitant]
     Active Substance: LAMOTRIGINE
  3. VITAFOL ULTRA [Concomitant]
     Active Substance: .ALPHA.-TOCOPHEROL ACETATE, DL-\.BETA.-CAROTENE\ASCORBIC ACID\CHOLECALCIFEROL\CUPRIC OXIDE\CYANOCOBA
  4. FLUOXETINE [Concomitant]
     Active Substance: FLUOXETINE HYDROCHLORIDE
  5. Sleep aid [Concomitant]
  6. CRANBERRY [Concomitant]
     Active Substance: CRANBERRY

REACTIONS (4)
  - Abdominal pain [None]
  - Maternal exposure during pregnancy [None]
  - Oral pain [None]
  - Glossodynia [None]

NARRATIVE: CASE EVENT DATE: 20211118
